FAERS Safety Report 4930820-6 (Version None)
Quarter: 2006Q1

REPORT INFORMATION
  Report Type: 
  Country: None (occurrence: None)
  Receive Date: 20060302
  Receipt Date: 20060221
  Transmission Date: 20060701
  Serious: Yes (Hospitalization)
  Sender: FDA-Public Use
  Company Number: US-ABBOTT-06P-163-0326173-00

PATIENT
  Age: 26 Year
  Sex: Female
  Weight: 57.204 kg

DRUGS (3)
  1. BIAXIN [Suspect]
     Indication: SINUSITIS
     Dates: start: 20051231, end: 20060104
  2. FACTIVE [Suspect]
     Indication: SINUSITIS
     Route: 048
     Dates: start: 20060105, end: 20060109
  3. CILEST [Concomitant]
     Indication: DRUG USE FOR UNKNOWN INDICATION
     Dates: start: 20010101

REACTIONS (7)
  - DEHYDRATION [None]
  - HEPATITIS [None]
  - HYPOKALAEMIA [None]
  - INSOMNIA [None]
  - LYMPHADENOPATHY [None]
  - PANCREATITIS [None]
  - PRURITUS [None]
